FAERS Safety Report 20553073 (Version 2)
Quarter: 2022Q1

REPORT INFORMATION
  Report Type: Spontaneous
  Country: FI (occurrence: FI)
  Receive Date: 20220304
  Receipt Date: 20220331
  Transmission Date: 20220423
  Serious: Yes (Hospitalization, Other)
  Sender: FDA-Public Use
  Company Number: FI-INDIVIOR EUROPE LIMITED-INDV-133177-2022

PATIENT

DRUGS (1)
  1. BUPRENORPHINE [Suspect]
     Active Substance: BUPRENORPHINE
     Indication: Product used for unknown indication
     Dosage: UNK
     Route: 042

REACTIONS (8)
  - Rhabdomyolysis [Unknown]
  - Myelopathy [Unknown]
  - Quadriparesis [Unknown]
  - Compartment syndrome [Unknown]
  - Loss of consciousness [Recovered/Resolved]
  - Substance abuse [Unknown]
  - Somnolence [Unknown]
  - Intentional product use issue [Unknown]
